FAERS Safety Report 9951012 (Version 2)
Quarter: 2014Q1

REPORT INFORMATION
  Report Type: Spontaneous
  Country: US (occurrence: US)
  Receive Date: 20140304
  Receipt Date: 20140304
  Transmission Date: 20141002
  Serious: No
  Sender: FDA-Public Use
  Company Number: US-AMGEN-USASP2013067288

PATIENT
  Age: 54 Year
  Sex: Female
  Weight: 113.38 kg

DRUGS (9)
  1. ENBREL [Suspect]
     Indication: RHEUMATOID ARTHRITIS
     Dosage: 50 MG, QWK
     Route: 058
     Dates: start: 20130815, end: 20131008
  2. METFORMIN [Concomitant]
     Dosage: 500 MG, UNK
  3. GLYBURIDE [Concomitant]
     Dosage: 2.5 MG, UNK
  4. GABAPENTIN [Concomitant]
     Dosage: 100 MG, UNK
  5. JANUVIA [Concomitant]
     Dosage: 25 MG, UNK
  6. FOLIC ACID [Concomitant]
     Dosage: UNK
  7. METHOTREXATE [Concomitant]
     Dosage: 2.5 MG, UNK
  8. MELOXICAM [Concomitant]
     Dosage: 7.5 MG, UNK
  9. TRIAMCINOLONE ACETONIDE [Concomitant]
     Dosage: UNK, TWICE A DAY
     Dates: start: 20131113

REACTIONS (7)
  - Photosensitivity reaction [Recovering/Resolving]
  - Arthralgia [Unknown]
  - Joint swelling [Unknown]
  - Rash papular [Recovered/Resolved]
  - Hypersensitivity [Recovered/Resolved]
  - Cough [Recovered/Resolved]
  - Nasopharyngitis [Recovered/Resolved]
